FAERS Safety Report 4662713-6 (Version None)
Quarter: 2005Q2

REPORT INFORMATION
  Report Type: 
  Country: None (occurrence: None)
  Receive Date: 20050516
  Receipt Date: 20041203
  Transmission Date: 20051028
  Serious: Yes (Death)
  Sender: FDA-Public Use
  Company Number: GB-GLAXOSMITHKLINE-B0359721A

PATIENT
  Sex: Female

DRUGS (6)
  1. PAROXETINE HCL [Suspect]
     Route: 065
  2. LORAZEPAM [Concomitant]
  3. CHLORPROMAZINE [Concomitant]
  4. BETAHISTINE [Concomitant]
  5. BENDROFLUAZIDE [Concomitant]
  6. ZOPICLONE [Concomitant]

REACTIONS (3)
  - COMPLETED SUICIDE [None]
  - VERTIGO [None]
  - VESTIBULAR DISORDER [None]
